FAERS Safety Report 6357718-3 (Version None)
Quarter: 2009Q3

REPORT INFORMATION
  Report Type: 
  Country: None (occurrence: None)
  Receive Date: 20090916
  Receipt Date: 20090904
  Transmission Date: 20100115
  Serious: Yes (Hospitalization)
  Sender: FDA-Public Use
  Company Number: JP-PFIZER INC-2009269405

PATIENT
  Age: 8 Year

DRUGS (2)
  1. GENOTROPIN [Suspect]
     Indication: PRADER-WILLI SYNDROME
     Dosage: 0.6 MG, 1X/DAY
     Route: 058
     Dates: start: 20040929
  2. GENOTROPIN [Suspect]
     Dosage: 1.3 MG, 1X/DAY
     Route: 058
     Dates: start: 20080801, end: 20090114

REACTIONS (1)
  - INGUINAL HERNIA [None]
